FAERS Safety Report 11181540 (Version 2)
Quarter: 2015Q3

REPORT INFORMATION
  Report Type: Spontaneous
  Country: US (occurrence: US)
  Receive Date: 20150611
  Receipt Date: 20150914
  Transmission Date: 20151125
  Serious: No
  Sender: FDA-Public Use
  Company Number: US-ASTELLAS-2015US013142

PATIENT
  Age: 76 Year
  Sex: Male

DRUGS (1)
  1. XTANDI [Suspect]
     Active Substance: ENZALUTAMIDE
     Indication: PROSTATE CANCER
     Dosage: 160 MG (4X40MG), ONCE DAILY
     Route: 048
     Dates: start: 20150401

REACTIONS (8)
  - Fatigue [Unknown]
  - Arthralgia [Unknown]
  - Erythema [Recovered/Resolved]
  - Back pain [Unknown]
  - Haemoglobin decreased [Unknown]
  - Arthritis [Unknown]
  - Hot flush [Unknown]
  - Hypoaesthesia [Not Recovered/Not Resolved]

NARRATIVE: CASE EVENT DATE: 201505
